FAERS Safety Report 17455578 (Version 3)
Quarter: 2021Q1

REPORT INFORMATION
  Report Type: Spontaneous
  Country: IT (occurrence: IT)
  Receive Date: 20200225
  Receipt Date: 20210120
  Transmission Date: 20210419
  Serious: Yes (Death, Hospitalization, Other)
  Sender: FDA-Public Use
  Company Number: IT-SUN PHARMACEUTICAL INDUSTRIES LTD-2020RR-237649

PATIENT
  Age: 40 Year
  Sex: Male

DRUGS (20)
  1. PROMAZINE [Suspect]
     Active Substance: PROMAZINE
     Indication: BIPOLAR DISORDER
     Dosage: AT NIGHT
     Route: 065
  2. SERENASE (HALOPERIDOL) [Suspect]
     Active Substance: HALOPERIDOL
     Indication: AGITATION
     Dosage: 15 MILLIGRAMS, UNK
     Route: 042
  3. MIDAZOLAM. [Interacting]
     Active Substance: MIDAZOLAM
     Dosage: 5 MILLIGRAMS, DAILY
     Route: 042
  4. HALOPERIDOL. [Interacting]
     Active Substance: HALOPERIDOL
     Indication: PRODUCT USED FOR UNKNOWN INDICATION
     Dosage: 5 MILLIGRAM, DAILY
     Route: 048
  5. LEPONEX [Suspect]
     Active Substance: CLOZAPINE
     Dosage: 400 MILLIGRAMS, DAILY
     Route: 048
  6. LARGACTIL [Suspect]
     Active Substance: CHLORPROMAZINE
     Indication: BIPOLAR DISORDER
     Dosage: 50 MILLIGRAMS, UNK
     Route: 042
  7. LEPONEX [Suspect]
     Active Substance: CLOZAPINE
     Dosage: 300 MILLIGRAMS, DAILY
     Route: 048
  8. DELORAZEPAM EN [Suspect]
     Active Substance: DELORAZEPAM
     Indication: PRODUCT USED FOR UNKNOWN INDICATION
     Dosage: 5 MILLIGRAMS, UNK
     Route: 048
  9. TRIMETON [Suspect]
     Active Substance: CHLORPHENIRAMINE MALEATE
     Indication: BIPOLAR DISORDER
     Dosage: 10 MILLIGRAMS, UNK
     Route: 042
  10. FLUVOXAMINE [Suspect]
     Active Substance: FLUVOXAMINE
     Indication: BIPOLAR DISORDER
     Dosage: 200 MILLIGRAMS, DAILY
     Route: 048
  11. VALPROIC ACID. [Interacting]
     Active Substance: VALPROIC ACID
     Indication: INSOMNIA
     Dosage: 500 MILLIGRAMS, DAILY
     Route: 048
  12. VALPROIC ACID. [Interacting]
     Active Substance: VALPROIC ACID
     Indication: AGITATION
     Dosage: 1500 MILLIGRAMS, DAILY
     Route: 048
  13. DELORAZEPAM [Suspect]
     Active Substance: DELORAZEPAM
     Indication: BIPOLAR DISORDER
     Dosage: 5 MILLIGRAMS, UNK
     Route: 042
  14. DELORAZEPAM [Suspect]
     Active Substance: DELORAZEPAM
     Indication: AGITATION
     Dosage: 5 MILLIGRAMS, UNK
     Route: 030
  15. HALOPERIDOL. [Interacting]
     Active Substance: HALOPERIDOL
     Dosage: 10 MILLIGRAM
     Route: 048
  16. LEPONEX [Suspect]
     Active Substance: CLOZAPINE
     Indication: BIPOLAR DISORDER
     Dosage: 400 MILLIGRAMS, DAILY
     Route: 048
  17. CLOTHIAPINE [Suspect]
     Active Substance: CLOTHIAPINE
     Indication: BIPOLAR DISORDER
     Dosage: 120 MILLIGRAMS, DAILY
     Route: 030
  18. CHLORPROMAZINE. [Suspect]
     Active Substance: CHLORPROMAZINE
     Indication: PRODUCT USED FOR UNKNOWN INDICATION
     Dosage: 50 MILLIGRAMS, UNK
     Route: 030
  19. MIDAZOLAM. [Interacting]
     Active Substance: MIDAZOLAM
     Indication: AGITATION
     Dosage: 15 MILLIGRAMS, DAILY
     Route: 042
  20. LEPONEX [Suspect]
     Active Substance: CLOZAPINE
     Dosage: 100 MILLIGRAMS, DAILY
     Route: 048

REACTIONS (7)
  - Insomnia [Unknown]
  - Toxicity to various agents [Unknown]
  - Cardiac arrest [Fatal]
  - Drug interaction [Unknown]
  - Agitation [Unknown]
  - Condition aggravated [Unknown]
  - Therapy partial responder [Unknown]
